FAERS Safety Report 15390353 (Version 1)
Quarter: 2018Q3

REPORT INFORMATION
  Report Type: Spontaneous
  Country: US (occurrence: US)
  Receive Date: 20180908
  Receipt Date: 20180908
  Transmission Date: 20181010
  Serious: Yes (Disabling)
  Sender: FDA-Public Use
  Company Number: None

PATIENT
  Age: 6 Week
  Sex: Male
  Weight: 56.25 kg

DRUGS (1)
  1. 1MG FINASTERIDE [Suspect]
     Active Substance: FINASTERIDE
     Indication: ALOPECIA
     Dosage: ?          QUANTITY:1 TABLET(S);?
     Route: 048
     Dates: start: 20180225, end: 20180310

REACTIONS (8)
  - Semen volume decreased [None]
  - Suicidal ideation [None]
  - Anxiety [None]
  - Painful ejaculation [None]
  - Lethargy [None]
  - Penile curvature [None]
  - Prostate infection [None]
  - Erectile dysfunction [None]

NARRATIVE: CASE EVENT DATE: 20180310
